FAERS Safety Report 4960877-8 (Version None)
Quarter: 2006Q1

REPORT INFORMATION
  Report Type: 
  Country: None (occurrence: None)
  Receive Date: 20060328
  Receipt Date: 20060313
  Transmission Date: 20060701
  Serious: Yes (Hospitalization, Other)
  Sender: FDA-Public Use
  Company Number: 2006012909

PATIENT
  Age: 63 Year
  Sex: Female

DRUGS (5)
  1. RANITIDINE HCL [Suspect]
     Indication: ULCER
     Dosage: 50 MG (25 MG, 2 IN 1 D), INTRAVENOUS
     Route: 042
     Dates: start: 20060105, end: 20060110
  2. CISPLATIN [Suspect]
     Indication: GASTRIC CANCER
     Dosage: 149 MG, CYCLIC, 1 IN 28 DAYS, INTRAVENOUS
     Route: 042
     Dates: start: 20060105, end: 20060105
  3. FLUOROURACIL [Suspect]
     Indication: GASTRIC CANCER
     Dosage: 1490 MG, CYCLIC, 1 IN 28 DAYS, INTRAVENOUS
     Route: 042
     Dates: start: 20060105, end: 20060110
  4. ONDANSETRON [Concomitant]
  5. DEXAMETHASONE [Concomitant]

REACTIONS (4)
  - DIARRHOEA [None]
  - HAEMOGLOBIN DECREASED [None]
  - NAUSEA [None]
  - VOMITING [None]
